FAERS Safety Report 8587608-7 (Version None)
Quarter: 2012Q3

REPORT INFORMATION
  Report Type: 
  Country: None (occurrence: None)
  Receive Date: 20120811
  Receipt Date: 20120727
  Transmission Date: 20120928
  Serious: No
  Sender: FDA-Public Use
  Company Number: US-009507513-1207USA011581

PATIENT

DRUGS (5)
  1. VALIUM [Concomitant]
  2. ISENTRESS [Suspect]
     Indication: HIV INFECTION
     Dosage: 400 MG, BID
     Route: 048
     Dates: start: 20120201
  3. FLEXERIL [Concomitant]
  4. CELEXA [Concomitant]
  5. TRUVADA [Concomitant]

REACTIONS (4)
  - SUBCUTANEOUS ABSCESS [None]
  - ANAEMIA [None]
  - PAIN [None]
  - WEIGHT DECREASED [None]
